FAERS Safety Report 15762363 (Version 11)
Quarter: 2019Q4

REPORT INFORMATION
  Report Type: Report from Study
  Country: US (occurrence: US)
  Receive Date: 20181226
  Receipt Date: 20191206
  Transmission Date: 20200122
  Serious: No
  Sender: FDA-Public Use
  Company Number: US-IPSEN BIOPHARMACEUTICALS, INC.-2018-19313

PATIENT
  Age: 10 Year
  Sex: Female
  Weight: 35.7 kg

DRUGS (35)
  1. KEPPRA [Concomitant]
     Active Substance: LEVETIRACETAM
     Dosage: EACH EVENING
     Route: 048
     Dates: start: 20180720, end: 20180911
  2. ACETAMINOPHEN. [Concomitant]
     Active Substance: ACETAMINOPHEN
     Indication: PROCEDURAL PAIN
     Route: 042
     Dates: start: 20190617, end: 20190617
  3. ACETAMINOPHEN. [Concomitant]
     Active Substance: ACETAMINOPHEN
     Indication: PROCEDURAL PAIN
     Route: 048
     Dates: start: 20190618, end: 20190620
  4. CEFAZOLIN [Concomitant]
     Active Substance: CEFAZOLIN
     Indication: INFECTION PROPHYLAXIS
     Route: 042
     Dates: start: 20190617, end: 20190617
  5. FENTANYL. [Concomitant]
     Active Substance: FENTANYL
     Indication: SEDATIVE THERAPY
     Route: 042
     Dates: start: 20190617, end: 20190617
  6. ONDANSETRON [Concomitant]
     Active Substance: ONDANSETRON
     Indication: PROPHYLAXIS OF NAUSEA AND VOMITING
     Route: 042
     Dates: start: 20190617, end: 20190617
  7. KEPPRA [Concomitant]
     Active Substance: LEVETIRACETAM
     Dosage: EACH MORNING
     Route: 048
     Dates: start: 20180720, end: 20180911
  8. KEPPRA [Concomitant]
     Active Substance: LEVETIRACETAM
     Route: 048
     Dates: start: 20180911, end: 20190501
  9. PRECEDEX [Concomitant]
     Active Substance: DEXMEDETOMIDINE HYDROCHLORIDE
     Indication: ANAESTHESIA
     Route: 042
     Dates: start: 20190617, end: 20190617
  10. GLYCOPYROLATE [Concomitant]
     Active Substance: GLYCOPYRROLATE
     Indication: INTRAOPERATIVE CARE
     Route: 042
     Dates: start: 20190617, end: 20190617
  11. DIAZEPAM. [Concomitant]
     Active Substance: DIAZEPAM
     Route: 042
     Dates: start: 20190617, end: 20190619
  12. KEPPRA [Concomitant]
     Active Substance: LEVETIRACETAM
     Indication: SEIZURE
     Dosage: EACH MORNING
     Route: 048
     Dates: start: 20150901, end: 20180720
  13. TORADOL [Concomitant]
     Active Substance: KETOROLAC TROMETHAMINE
     Indication: PROCEDURAL PAIN
     Route: 042
     Dates: start: 20190617, end: 20190620
  14. BACLOFEN. [Concomitant]
     Active Substance: BACLOFEN
     Indication: MUSCLE SPASTICITY
     Route: 048
     Dates: start: 20130501
  15. KEPPRA [Concomitant]
     Active Substance: LEVETIRACETAM
     Route: 048
     Dates: start: 20190501
  16. MORPHINE [Concomitant]
     Active Substance: MORPHINE
     Indication: PROCEDURAL PAIN
     Route: 042
     Dates: start: 20190617, end: 20190617
  17. ROCURONIUM [Concomitant]
     Active Substance: ROCURONIUM BROMIDE
     Indication: ANAESTHESIA
     Route: 042
     Dates: start: 20190617, end: 20190617
  18. ONDANSETRON [Concomitant]
     Active Substance: ONDANSETRON
     Indication: PROCEDURAL NAUSEA
     Route: 042
     Dates: start: 20190617, end: 20190618
  19. PROMETHAZINE [Concomitant]
     Active Substance: PROMETHAZINE HYDROCHLORIDE
     Indication: PROCEDURAL NAUSEA
     Route: 042
     Dates: start: 20190617, end: 20190618
  20. DYSPORT [Suspect]
     Active Substance: ABOBOTULINUMTOXINA
     Indication: MUSCLE SPASTICITY
     Dosage: 600 IU
     Route: 030
     Dates: start: 20190430, end: 20190430
  21. FLONASE [Concomitant]
     Active Substance: FLUTICASONE PROPIONATE
     Indication: RHINITIS ALLERGIC
     Dosage: 2 SPRAYS
     Route: 045
     Dates: start: 2012
  22. DIASTAT [Concomitant]
     Active Substance: DIAZEPAM
     Indication: SEIZURE
     Route: 054
     Dates: start: 20150827
  23. NEOSTIGMINE. [Concomitant]
     Active Substance: NEOSTIGMINE METHYLSULFATE
     Indication: ANAESTHESIA REVERSAL
     Route: 042
     Dates: start: 20190617, end: 20190617
  24. DIAZEPAM. [Concomitant]
     Active Substance: DIAZEPAM
     Indication: MUSCLE SPASMS
     Route: 048
     Dates: start: 20190620, end: 20190627
  25. DYSPORT [Suspect]
     Active Substance: ABOBOTULINUMTOXINA
     Indication: OFF LABEL USE
  26. ZYRTEC [Concomitant]
     Active Substance: CETIRIZINE HYDROCHLORIDE
     Indication: RHINITIS ALLERGIC
     Route: 048
     Dates: start: 2009
  27. PROAIR HFA [Concomitant]
     Active Substance: ALBUTEROL SULFATE
     Indication: ASTHMA
     Dosage: 2 PUFFS AS REQUIRED
     Route: 045
     Dates: start: 20130110
  28. MIRALAX [Concomitant]
     Active Substance: POLYETHYLENE GLYCOL 3350
     Indication: CONSTIPATION
     Dosage: 2 TEASPOON
     Route: 048
     Dates: start: 2011
  29. CEFAZOLIN [Concomitant]
     Active Substance: CEFAZOLIN
     Route: 042
     Dates: start: 20190617, end: 20190617
  30. LIDOCAINE. [Concomitant]
     Active Substance: LIDOCAINE
     Indication: PROCEDURAL PAIN
     Route: 042
     Dates: start: 20190617, end: 20190617
  31. MEPERIDINE [Concomitant]
     Active Substance: MEPERIDINE
     Indication: PROCEDURAL PAIN
     Route: 042
     Dates: start: 20190617, end: 20190617
  32. MIRALAX [Concomitant]
     Active Substance: POLYETHYLENE GLYCOL 3350
     Indication: POST PROCEDURAL CONSTIPATION
     Route: 048
     Dates: start: 20190620, end: 20190620
  33. KEPPRA [Concomitant]
     Active Substance: LEVETIRACETAM
     Dosage: EACH EVENING
     Route: 048
     Dates: start: 20150901, end: 20180720
  34. PROPOFOL. [Concomitant]
     Active Substance: PROPOFOL
     Indication: ANAESTHESIA
     Route: 042
     Dates: start: 20190617, end: 20190617
  35. BUSCOFEM [Concomitant]
     Active Substance: IBUPROFEN
     Indication: PROCEDURAL PAIN
     Route: 048
     Dates: start: 20190620, end: 20190707

REACTIONS (11)
  - Muscle spasms [Recovered/Resolved]
  - Procedural nausea [Recovered/Resolved]
  - Fatigue [Recovered/Resolved]
  - Off label use [Unknown]
  - Asthenia [Recovered/Resolved]
  - Joint dislocation [Recovered/Resolved]
  - Upper respiratory tract infection [Recovered/Resolved]
  - Gastroenteritis viral [Recovered/Resolved]
  - Fatigue [Recovered/Resolved]
  - Asthenia [Recovered/Resolved]
  - Procedural pain [Recovered/Resolved]

NARRATIVE: CASE EVENT DATE: 20181002
